FAERS Safety Report 15524743 (Version 3)
Quarter: 2019Q3

REPORT INFORMATION
  Report Type: Spontaneous
  Country: US (occurrence: US)
  Receive Date: 20181018
  Receipt Date: 20190821
  Transmission Date: 20191004
  Serious: Yes (Other)
  Sender: FDA-Public Use
  Company Number: US-ASTRAZENECA-2018SF32086

PATIENT
  Age: 21685 Day
  Sex: Male
  Weight: 71.4 kg

DRUGS (42)
  1. NEXIUM [Suspect]
     Active Substance: ESOMEPRAZOLE MAGNESIUM
     Indication: DYSPEPSIA
     Route: 048
     Dates: start: 2008, end: 2010
  2. SINGULAIR [Concomitant]
     Active Substance: MONTELUKAST SODIUM
  3. ADVAIR HFA [Concomitant]
     Active Substance: FLUTICASONE PROPIONATE\SALMETEROL XINAFOATE
  4. ZYRTEC [Concomitant]
     Active Substance: CETIRIZINE HYDROCHLORIDE
  5. HELIDAC [Concomitant]
     Active Substance: BISMUTH SUBSALICYLATE\METRONIDAZOLE\TETRACYCLINE HYDROCHLORIDE
  6. TRAMADOL. [Concomitant]
     Active Substance: TRAMADOL
  7. NAPROXEN. [Concomitant]
     Active Substance: NAPROXEN
  8. PROAIR HFA [Concomitant]
     Active Substance: ALBUTEROL SULFATE
  9. SIMETHICONE (DIMETHICONE) [Concomitant]
     Active Substance: DIMETHICONE
  10. ASPIRIN. [Concomitant]
     Active Substance: ASPIRIN
  11. BACLOFEN. [Concomitant]
     Active Substance: BACLOFEN
  12. LEVOTHYROXINE. [Concomitant]
     Active Substance: LEVOTHYROXINE
  13. ANUSOL NOS [Concomitant]
     Active Substance: BALSAM PERU\BENZYL BENZOATE\BISMUTH HYDROXIDE\BISMUTH SUBGALLATE\HYDROCORTISONE ACETATE\ZINC OXIDE
  14. CAFERGOT [Concomitant]
     Active Substance: CAFFEINE\ERGOTAMINE TARTRATE
  15. DOXYCYCLINE. [Concomitant]
     Active Substance: DOXYCYCLINE
  16. LISINOPRIL. [Concomitant]
     Active Substance: LISINOPRIL
  17. PROPOFOL. [Concomitant]
     Active Substance: PROPOFOL
  18. ZOCOR [Concomitant]
     Active Substance: SIMVASTATIN
  19. CEFUROXIME. [Concomitant]
     Active Substance: CEFUROXIME
  20. MECLIZINE [Concomitant]
     Active Substance: MECLIZINE HYDROCHLORIDE
  21. NEXIUM [Suspect]
     Active Substance: ESOMEPRAZOLE MAGNESIUM
     Indication: DYSPEPSIA
     Route: 048
     Dates: start: 201001, end: 201004
  22. TERAZOSIN [Concomitant]
     Active Substance: TERAZOSIN HYDROCHLORIDE
  23. CLINDAMYCIN. [Concomitant]
     Active Substance: CLINDAMYCIN
  24. PENICILLIN [Concomitant]
     Active Substance: PENICILLIN
  25. NITROQUICK [Concomitant]
     Active Substance: NITROGLYCERIN
  26. FEXOFENADINE [Concomitant]
     Active Substance: FEXOFENADINE HYDROCHLORIDE
  27. PANTOPRAZOLE [Suspect]
     Active Substance: PANTOPRAZOLE
     Indication: DYSPEPSIA
     Dosage: GENERIC
     Route: 065
  28. TAMSULOSIN [Concomitant]
     Active Substance: TAMSULOSIN
  29. PRILOSEC OTC [Suspect]
     Active Substance: OMEPRAZOLE MAGNESIUM
     Indication: DYSPEPSIA
     Route: 048
     Dates: start: 2008, end: 2010
  30. VITAMIN C [Concomitant]
     Active Substance: ASCORBIC ACID
  31. MAPAP [Concomitant]
     Active Substance: ACETAMINOPHEN
  32. PROCTOSOL [Concomitant]
  33. KETAMINE [Concomitant]
     Active Substance: KETAMINE
  34. OMEPRAZOLE. [Suspect]
     Active Substance: OMEPRAZOLE
     Indication: DYSPEPSIA
     Dosage: GENERIC
     Route: 065
     Dates: start: 200701, end: 200702
  35. OMEPRAZOLE. [Suspect]
     Active Substance: OMEPRAZOLE
     Indication: DYSPEPSIA
     Dosage: GENERIC
     Route: 065
     Dates: start: 20070101
  36. LOSARTAN. [Concomitant]
     Active Substance: LOSARTAN
  37. COMBIVENT [Concomitant]
     Active Substance: ALBUTEROL SULFATE\IPRATROPIUM BROMIDE
  38. LEVOTHROID [Concomitant]
     Active Substance: LEVOTHYROXINE SODIUM
  39. METFORMIN [Concomitant]
     Active Substance: METFORMIN HYDROCHLORIDE
  40. SMZ\TMP [Concomitant]
  41. ANUCORT [Concomitant]
  42. FLUCONAZOLE. [Concomitant]
     Active Substance: FLUCONAZOLE

REACTIONS (2)
  - Chronic kidney disease [Not Recovered/Not Resolved]
  - Renal failure [Unknown]

NARRATIVE: CASE EVENT DATE: 20041112
